FAERS Safety Report 14919484 (Version 2)
Quarter: 2018Q3

REPORT INFORMATION
  Report Type: Report from Study
  Country: US (occurrence: US)
  Receive Date: 20180521
  Receipt Date: 20180903
  Transmission Date: 20181010
  Serious: No
  Sender: FDA-Public Use
  Company Number: US-ALEXION PHARMACEUTICALS INC.-A201805986

PATIENT
  Sex: Female
  Weight: 22 kg

DRUGS (1)
  1. STRENSIQ [Suspect]
     Active Substance: ASFOTASE ALFA
     Indication: HYPOPHOSPHATASIA
     Dosage: 2 MG/KG, Q3W
     Route: 065
     Dates: start: 201604

REACTIONS (3)
  - Swelling [Unknown]
  - Blood alkaline phosphatase increased [Unknown]
  - Dyspnoea [Unknown]
